FAERS Safety Report 13285182 (Version 5)
Quarter: 2017Q3

REPORT INFORMATION
  Report Type: Spontaneous
  Country: SA (occurrence: SA)
  Receive Date: 20170301
  Receipt Date: 20170816
  Transmission Date: 20171127
  Serious: Yes (Hospitalization, Other)
  Sender: FDA-Public Use
  Company Number: SA-JNJFOC-20170227570

PATIENT
  Age: 49 Year
  Sex: Female
  Weight: 84 kg

DRUGS (16)
  1. FUROSEMIDE. [Concomitant]
     Active Substance: FUROSEMIDE
     Indication: PULMONARY HYPERTENSION
     Route: 065
     Dates: start: 20160216
  2. RIOCIGUAT [Concomitant]
     Active Substance: RIOCIGUAT
     Route: 065
  3. SILDENAFIL. [Concomitant]
     Active Substance: SILDENAFIL
     Route: 065
     Dates: start: 20160515
  4. ENOXAPARIN [Concomitant]
     Active Substance: ENOXAPARIN
     Indication: PULMONARY HYPERTENSION
     Route: 065
     Dates: start: 20170129
  5. SPIRONOLACTONE. [Concomitant]
     Active Substance: SPIRONOLACTONE
     Indication: PULMONARY HYPERTENSION
     Route: 065
     Dates: start: 20150528
  6. OMEPRAZOLE. [Concomitant]
     Active Substance: OMEPRAZOLE
     Route: 065
     Dates: start: 20170129
  7. LEVOTHYROXINE. [Concomitant]
     Active Substance: LEVOTHYROXINE
     Indication: PULMONARY HYPERTENSION
     Route: 065
     Dates: start: 20150528
  8. ILOPROST. [Suspect]
     Active Substance: ILOPROST
     Indication: PULMONARY HYPERTENSION
     Route: 065
     Dates: start: 20160515
  9. SILDENAFIL. [Concomitant]
     Active Substance: SILDENAFIL
     Route: 065
     Dates: start: 2010, end: 20160127
  10. RIOCIGUAT [Concomitant]
     Active Substance: RIOCIGUAT
     Route: 065
     Dates: start: 20170410
  11. MACITENTAN [Concomitant]
     Active Substance: MACITENTAN
     Route: 065
     Dates: start: 20160518
  12. MACITENTAN [Concomitant]
     Active Substance: MACITENTAN
     Route: 065
     Dates: start: 20150528, end: 20160127
  13. ENOXAPARIN [Concomitant]
     Active Substance: ENOXAPARIN
     Indication: PULMONARY HYPERTENSION
     Route: 065
     Dates: start: 20160518, end: 20161016
  14. RIVAROXABAN [Suspect]
     Active Substance: RIVAROXABAN
     Indication: PULMONARY HYPERTENSION
     Route: 048
     Dates: start: 20161016, end: 20170129
  15. ASPIRIN. [Concomitant]
     Active Substance: ASPIRIN
     Indication: PULMONARY HYPERTENSION
     Route: 065
     Dates: start: 20160518
  16. WARFARIN [Concomitant]
     Active Substance: WARFARIN
     Indication: INTERNATIONAL NORMALISED RATIO ABNORMAL
     Route: 065

REACTIONS (3)
  - Dyspnoea [Recovered/Resolved]
  - Chest pain [Recovered/Resolved]
  - Haemoptysis [Recovered/Resolved]

NARRATIVE: CASE EVENT DATE: 20170124
